FAERS Safety Report 21817030 (Version 1)
Quarter: 2023Q1

REPORT INFORMATION
  Report Type: Report from Study
  Country: US (occurrence: US)
  Receive Date: 20230104
  Receipt Date: 20230104
  Transmission Date: 20230418
  Serious: Yes (Other)
  Sender: FDA-Public Use
  Company Number: US-Indivior Limited-  INDV-137352-2022

PATIENT

DRUGS (4)
  1. SUBLOCADE [Suspect]
     Active Substance: BUPRENORPHINE
     Indication: Drug dependence
     Dosage: 100 MILLIGRAM, QMO
     Route: 058
  2. KETOTIF [Concomitant]
     Indication: Product used for unknown indication
     Dosage: UNK (0.025% DROPS)
     Route: 065
  3. ZADITOR [KETOTIFEN FUMARATE] [Concomitant]
     Indication: Product used for unknown indication
     Dosage: UNK  (0.025% DROPS)
     Route: 065
  4. AMOXICILLIN [Concomitant]
     Active Substance: AMOXICILLIN
     Indication: Product used for unknown indication
     Dosage: 500 MILLIGRAM
     Route: 065

REACTIONS (1)
  - Seizure [Not Recovered/Not Resolved]

NARRATIVE: CASE EVENT DATE: 20220101
